FAERS Safety Report 7505177-7 (Version None)
Quarter: 2011Q2

REPORT INFORMATION
  Report Type: 
  Country: None (occurrence: None)
  Receive Date: 20110526
  Receipt Date: 20101227
  Transmission Date: 20111010
  Serious: Yes (Hospitalization)
  Sender: FDA-Public Use
  Company Number: US-BAYER-201022317NA

PATIENT
  Age: 26 Year
  Sex: Female
  Weight: 90.909 kg

DRUGS (7)
  1. ASCORBIC ACID [Concomitant]
     Indication: PRODUCT USED FOR UNKNOWN INDICATION
     Route: 065
  2. ROXICET [Concomitant]
     Indication: POSTOPERATIVE ANALGESIA
     Dosage: 1-2 TEASPON EVERY 4-6 HOURS AS NEEDED
  3. YAZ [Suspect]
     Indication: CONTRACEPTION
     Route: 048
     Dates: start: 20061222, end: 20090710
  4. MINOCYCLINE HCL [Concomitant]
     Indication: PRODUCT USED FOR UNKNOWN INDICATION
     Route: 065
  5. YAZ [Suspect]
     Indication: PREMENSTRUAL SYNDROME
  6. YAZ [Suspect]
     Indication: MENSTRUATION IRREGULAR
  7. CEPHALEXIN [Concomitant]
     Indication: PRODUCT USED FOR UNKNOWN INDICATION
     Dosage: 1000 MG (DAILY DOSE), QID, UNKNOWN
     Route: 065

REACTIONS (7)
  - NAUSEA [None]
  - ARTHRALGIA [None]
  - COLD SWEAT [None]
  - DIZZINESS [None]
  - PULMONARY EMBOLISM [None]
  - CHEST PAIN [None]
  - DYSPNOEA [None]
